FAERS Safety Report 5166558-2 (Version None)
Quarter: 2006Q4

REPORT INFORMATION
  Report Type: 
  Country: None (occurrence: None)
  Receive Date: 20061129
  Receipt Date: 20061113
  Transmission Date: 20070319
  Serious: Yes (Death)
  Sender: FDA-Public Use
  Company Number: 2006000548

PATIENT
  Age: 61 Year
  Sex: Female

DRUGS (4)
  1. TARCEVA [Suspect]
     Indication: GASTRIC CANCER
     Dosage: 500 MG (Q 36 HOURS), ORAL
     Route: 048
     Dates: start: 20051115, end: 20060114
  2. AVASTIN [Suspect]
     Indication: GASTRIC CANCER
     Dosage: 200 - 275 MG, INTRAVENOUS
     Route: 042
     Dates: start: 20050713, end: 20060105
  3. DOCETAXEL (DOCETAXEL) [Suspect]
     Indication: GASTRIC CANCER
     Dates: start: 20050310, end: 20060105
  4. IRINOTECAN HCL [Suspect]
     Indication: GASTRIC CANCER
     Dates: start: 20051019, end: 20060105

REACTIONS (12)
  - CARCINOEMBRYONIC ANTIGEN INCREASED [None]
  - DRUG HYPERSENSITIVITY [None]
  - DRUG TOXICITY [None]
  - GASTRIC CANCER [None]
  - INTRACRANIAL VENOUS SINUS THROMBOSIS [None]
  - MALIGNANT NEOPLASM PROGRESSION [None]
  - NERVOUS SYSTEM DISORDER [None]
  - NEUROLOGICAL SYMPTOM [None]
  - PYREXIA [None]
  - RASH [None]
  - SUBARACHNOID HAEMORRHAGE [None]
  - UNEVALUABLE EVENT [None]
